FAERS Safety Report 14279611 (Version 1)
Quarter: 2017Q4

REPORT INFORMATION
  Report Type: Spontaneous
  Country: US (occurrence: US)
  Receive Date: 20171213
  Receipt Date: 20171213
  Transmission Date: 20180321
  Serious: Yes (Life-Threatening, Other)
  Sender: FDA-Public Use
  Company Number: US-SUN PHARMACEUTICAL INDUSTRIES LTD-2017US-156823

PATIENT
  Age: 31 Year
  Sex: Male

DRUGS (4)
  1. DEXAMETHASONE. [Suspect]
     Active Substance: DEXAMETHASONE
     Indication: HISTIOCYTOSIS HAEMATOPHAGIC
     Dosage: UNK
     Route: 065
  2. IMMUNE GLOBULIN [Suspect]
     Active Substance: HUMAN IMMUNOGLOBULIN G
     Indication: HISTIOCYTOSIS HAEMATOPHAGIC
     Dosage: UNK
     Route: 042
  3. GANCICLOVIR. [Suspect]
     Active Substance: GANCICLOVIR
     Indication: HISTIOCYTOSIS HAEMATOPHAGIC
     Dosage: UNK
     Route: 065
  4. RITUXIMAB. [Suspect]
     Active Substance: RITUXIMAB
     Indication: HISTIOCYTOSIS HAEMATOPHAGIC
     Route: 065

REACTIONS (1)
  - Drug ineffective [Unknown]
